FAERS Safety Report 21454662 (Version 12)
Quarter: 2025Q1

REPORT INFORMATION
  Report Type: Report from Study
  Country: JP (occurrence: JP)
  Receive Date: 20221013
  Receipt Date: 20250318
  Transmission Date: 20250409
  Serious: Yes (Hospitalization, Other)
  Sender: TAKEDA
  Company Number: JP-TAKEDA-2022TJP075309

PATIENT
  Age: 6 Year
  Sex: Male
  Weight: 10.9 kg

DRUGS (31)
  1. TEDUGLUTIDE [Suspect]
     Active Substance: TEDUGLUTIDE
     Indication: Short-bowel syndrome
     Dates: start: 20211004, end: 20211120
  2. TEDUGLUTIDE [Suspect]
     Active Substance: TEDUGLUTIDE
     Dates: start: 20211201, end: 20220823
  3. TEDUGLUTIDE [Suspect]
     Active Substance: TEDUGLUTIDE
     Dates: start: 20220906, end: 20230720
  4. TEDUGLUTIDE [Suspect]
     Active Substance: TEDUGLUTIDE
  5. MIYA-BM [Concomitant]
     Active Substance: CLOSTRIDIUM BUTYRICUM SPORES STRAIN M-55
     Indication: Short-bowel syndrome
     Dosage: 1 GRAM, TID
  6. HERBALS [Concomitant]
     Active Substance: HERBALS
     Indication: Short-bowel syndrome
     Dosage: 1 GRAM, TID
  7. LANSOPRAZOLE [Concomitant]
     Active Substance: LANSOPRAZOLE
     Indication: Short-bowel syndrome
     Dosage: 5 MILLIGRAM, QD
  8. URSO [Concomitant]
     Active Substance: URSODIOL
     Indication: Short-bowel syndrome
     Dosage: 40 MILLIGRAM, TID
  9. Ogikenchuto [Concomitant]
     Indication: Short-bowel syndrome
     Dosage: 1.5 GRAM, TID
  10. ZINC [Concomitant]
     Active Substance: ZINC
     Indication: Short-bowel syndrome
     Dosage: 12.5 MILLIGRAM, BID
  11. ZINC [Concomitant]
     Active Substance: ZINC
     Dosage: 12.5 MILLIGRAM, TID
  12. ZINC [Concomitant]
     Active Substance: ZINC
     Dosage: 12.5 MILLIGRAM, BID
  13. AMINO ACIDS\CARBOHYDRATES\MINERALS\SOYBEAN OIL\VITAMINS [Concomitant]
     Active Substance: AMINO ACIDS\CARBOHYDRATES\MINERALS\SOYBEAN OIL\VITAMINS
     Indication: Short-bowel syndrome
     Dates: start: 20211125, end: 20220816
  14. AMINO ACIDS\CARBOHYDRATES\MINERALS\SOYBEAN OIL\VITAMINS [Concomitant]
     Active Substance: AMINO ACIDS\CARBOHYDRATES\MINERALS\SOYBEAN OIL\VITAMINS
  15. AMINO ACIDS\CARBOHYDRATES\MINERALS\SOYBEAN OIL\VITAMINS [Concomitant]
     Active Substance: AMINO ACIDS\CARBOHYDRATES\MINERALS\SOYBEAN OIL\VITAMINS
  16. AMINO ACIDS\CARBOHYDRATES\MINERALS\SOYBEAN OIL\VITAMINS [Concomitant]
     Active Substance: AMINO ACIDS\CARBOHYDRATES\MINERALS\SOYBEAN OIL\VITAMINS
     Dates: start: 20220922, end: 20230721
  17. AMINO ACIDS\CARBOHYDRATES\MINERALS\SOYBEAN OIL\VITAMINS [Concomitant]
     Active Substance: AMINO ACIDS\CARBOHYDRATES\MINERALS\SOYBEAN OIL\VITAMINS
  18. AMINO ACIDS\CARBOHYDRATES\MINERALS\SOYBEAN OIL\VITAMINS [Concomitant]
     Active Substance: AMINO ACIDS\CARBOHYDRATES\MINERALS\SOYBEAN OIL\VITAMINS
  19. LEVOCARNITINE [Concomitant]
     Active Substance: LEVOCARNITINE
     Indication: Short-bowel syndrome
  20. ASELEND [Concomitant]
     Indication: Short-bowel syndrome
  21. AMINO ACIDS\DEXTROSE\ELECTROLYTES NOS\MINERALS\VITAMINS [Concomitant]
     Active Substance: AMINO ACIDS\DEXTROSE\ELECTROLYTES NOS\MINERALS\VITAMINS
     Indication: Short-bowel syndrome
  22. ELECTROLYTES NOS [Concomitant]
     Active Substance: ELECTROLYTES NOS
     Indication: Short-bowel syndrome
  23. Pelol [Concomitant]
     Indication: Short-bowel syndrome
  24. SOYBEAN OIL [Concomitant]
     Active Substance: SOYBEAN OIL
     Indication: Short-bowel syndrome
  25. Hishiphagen combination [Concomitant]
  26. ZINC OXIDE [Concomitant]
     Active Substance: ZINC OXIDE
  27. AZUNOL [Concomitant]
  28. HEPARINOID [Concomitant]
  29. BETAMETHASONE VALERATE [Concomitant]
     Active Substance: BETAMETHASONE VALERATE
  30. SOLDEM 3A [Concomitant]
     Active Substance: CARBOHYDRATES\POTASSIUM CHLORIDE\SODIUM CHLORIDE\SODIUM LACTATE
     Indication: Short-bowel syndrome
  31. HERBALS [Concomitant]
     Active Substance: HERBALS
     Indication: Short-bowel syndrome

REACTIONS (9)
  - Pancreatitis [Recovered/Resolved]
  - Pancreatitis acute [Recovered/Resolved]
  - Vascular device infection [Recovered/Resolved]
  - Anal abscess [Recovering/Resolving]
  - COVID-19 [Recovered/Resolved]
  - Food protein-induced enterocolitis syndrome [Not Recovered/Not Resolved]
  - Metapneumovirus infection [Recovered/Resolved]
  - Pancreatic enzymes increased [Recovered/Resolved]
  - Underdose [Not Recovered/Not Resolved]

NARRATIVE: CASE EVENT DATE: 20211120
